FAERS Safety Report 26002900 (Version 1)
Quarter: 2025Q4

REPORT INFORMATION
  Report Type: Spontaneous
  Country: EU (occurrence: EU)
  Receive Date: 20251106
  Receipt Date: 20251106
  Transmission Date: 20260118
  Serious: Yes (Hospitalization, Other)
  Sender: TEVA
  Company Number: None

PATIENT
  Age: 50 Year
  Sex: Male
  Weight: 84 kg

DRUGS (3)
  1. PREDNISOLONE [Suspect]
     Active Substance: PREDNISOLONE
     Indication: Adrenocortical steroid therapy
     Dosage: IT WAS PLANNED THAT THE PATIENT SHOULD HAVE BEEN TREATED FOR 8 WEEKS AND AFTERWARDS THE DOSE SHOU...
     Route: 048
     Dates: start: 20250516, end: 20250717
  2. GABAPENTIN [Concomitant]
     Active Substance: GABAPENTIN
     Indication: Restlessness
     Route: 048
     Dates: start: 20250414
  3. LOSARTAN [Concomitant]
     Active Substance: LOSARTAN
     Indication: Hypertension
     Route: 048
     Dates: start: 20241118

REACTIONS (1)
  - Duodenal ulcer perforation [Not Recovered/Not Resolved]

NARRATIVE: CASE EVENT DATE: 20250717
